FAERS Safety Report 5025823-X (Version None)
Quarter: 2006Q2

REPORT INFORMATION
  Report Type: 
  Country: None (occurrence: None)
  Receive Date: 20060608
  Receipt Date: 20060607
  Transmission Date: 20061013
  Serious: Yes (Hospitalization, Other)
  Sender: FDA-Public Use
  Company Number: HQWYE558830MAY06

PATIENT
  Age: 61 Year
  Sex: Female

DRUGS (6)
  1. PANTOPRAZOLE SODIUM [Suspect]
     Dosage: 40 MG 1X PER 1 DAY ORAL; SEE IMAGE
     Route: 048
     Dates: start: 20060310, end: 20060328
  2. LAMICTAL [Suspect]
     Dosage: 50 MG 1X PER 1 DAY ORAL
     Route: 048
     Dates: start: 20060310, end: 20060329
  3. MEDROL ACETATE [Suspect]
     Dosage: ^ DF ^ ORAL
     Route: 048
     Dates: start: 20060310, end: 20060329
  4. ACETAMINOPHEN [Suspect]
     Dosage: ^DF^ ORAL
     Route: 048
     Dates: start: 20060310, end: 20060329
  5. ZOLPIDEM TARTRATE [Suspect]
     Dosage: ^DF^ ORAL
     Route: 048
     Dates: start: 20060310, end: 20060328
  6. URBANYL (CLOBAZAM, ) [Suspect]
     Dosage: 5 MG 1X PER 1 DAY ORAL
     Route: 048
     Dates: start: 20060310, end: 20060329

REACTIONS (6)
  - CHEILITIS [None]
  - CONJUNCTIVITIS [None]
  - FACE OEDEMA [None]
  - PALATAL DISORDER [None]
  - PURPURA [None]
  - RASH MACULO-PAPULAR [None]
